FAERS Safety Report 6552953-3 (Version None)
Quarter: 2010Q1

REPORT INFORMATION
  Report Type: 
  Country: None (occurrence: None)
  Receive Date: 20100127
  Receipt Date: 20100114
  Transmission Date: 20100710
  Serious: Yes (Other)
  Sender: FDA-Public Use
  Company Number: US-RANBAXY-2010RR-30559

PATIENT
  Age: 47 Year
  Sex: Male

DRUGS (4)
  1. ZOLPIDEM TARTRATE [Suspect]
     Dosage: 5 MG, UNK
  2. CITALOPRAM [Suspect]
     Dosage: 40 MG, QD
  3. VALPROIC ACID [Suspect]
     Dosage: 250 MG, BID
  4. VALPROIC ACID [Suspect]

REACTIONS (2)
  - DRUG INTERACTION [None]
  - SOMNAMBULISM [None]
